FAERS Safety Report 4987297-4 (Version None)
Quarter: 2006Q2

REPORT INFORMATION
  Report Type: 
  Country: None (occurrence: None)
  Receive Date: 20060427
  Receipt Date: 20060427
  Transmission Date: 20061013
  Serious: Yes (Hospitalization)
  Sender: FDA-Public Use
  Company Number: None

PATIENT
  Age: 40 Year
  Sex: Female

DRUGS (1)
  1. METHIMAZOLE [Suspect]

REACTIONS (3)
  - HEPATIC ENZYME ABNORMAL [None]
  - NAUSEA [None]
  - VOMITING [None]
